FAERS Safety Report 19090218 (Version 1)
Quarter: 2021Q2

REPORT INFORMATION
  Report Type: Spontaneous
  Country: US (occurrence: US)
  Receive Date: 20210404
  Receipt Date: 20210404
  Transmission Date: 20210717
  Serious: No
  Sender: FDA-Public Use
  Company Number: US-SA-2021SA110704

PATIENT
  Sex: Male

DRUGS (2)
  1. FABRAZYME [Suspect]
     Active Substance: AGALSIDASE BETA
     Indication: FABRY^S DISEASE
     Dosage: UNK
     Route: 050
     Dates: start: 20171117
  2. TACROLIMUS. [Suspect]
     Active Substance: TACROLIMUS

REACTIONS (1)
  - Adverse drug reaction [Unknown]
